FAERS Safety Report 25413868 (Version 2)
Quarter: 2025Q3

REPORT INFORMATION
  Report Type: Report from Study
  Country: US (occurrence: US)
  Receive Date: 20250609
  Receipt Date: 20250803
  Transmission Date: 20251021
  Serious: Yes (Other)
  Sender: ALEXION PHARMACEUTICALS
  Company Number: US-AstraZeneca-CH-00883760A

PATIENT
  Age: 68 Year
  Sex: Female

DRUGS (2)
  1. ACALABRUTINIB [Suspect]
     Active Substance: ACALABRUTINIB
     Indication: Chronic lymphocytic leukaemia
     Dosage: 100 MILLIGRAM, BID
     Dates: start: 202304
  2. CORTISONE [Concomitant]
     Active Substance: CORTISONE
     Route: 065

REACTIONS (10)
  - Inflammation [Unknown]
  - Arthralgia [Unknown]
  - Product dose omission issue [Unknown]
  - Pneumonia [Unknown]
  - Meniscus injury [Unknown]
  - Ligament rupture [Unknown]
  - Nasal congestion [Unknown]
  - Skin odour abnormal [Unknown]
  - Skin discolouration [Unknown]
  - Intentional dose omission [Unknown]
